FAERS Safety Report 17713104 (Version 2)
Quarter: 2020Q2

REPORT INFORMATION
  Report Type: Spontaneous
  Country: US (occurrence: US)
  Receive Date: 20200427
  Receipt Date: 20200519
  Transmission Date: 20200714
  Serious: Yes (Hospitalization, Other)
  Sender: FDA-Public Use
  Company Number: US-AMAG PHARMACEUTICALS, INC.-AMAG202001410

PATIENT
  Age: 29 Year
  Sex: Female
  Weight: 117.59 kg

DRUGS (5)
  1. FLAGYL [Concomitant]
     Active Substance: METRONIDAZOLE\METRONIDAZOLE HYDROCHLORIDE
     Indication: TRICHOMONIASIS
     Dosage: 500 MG BID X 7 DAYS
  2. VITAFOL ULTRA [Concomitant]
     Active Substance: .ALPHA.-TOCOPHEROL ACETATE, DL-\.BETA.-CAROTENE\ASCORBIC ACID\CHOLECALCIFEROL\CUPRIC OXIDE\CYANOCOBALAMIN\DOCONEXENT\FOLIC ACID\IRON\LEVOMEFOLATE CALCIUM\MAGNESIUM OXIDE\NIACINAMIDE\POTASSIUM IODIDE\PYRIDOXINE HYDROCHLORIDE\RIBOFLAVIN\THIAMINE MONONITRATE\ZINC OXIDE
     Indication: VITAMIN SUPPLEMENTATION
     Dosage: 1 CAPSULE DAILY
  3. PROMETHAZINE [Concomitant]
     Active Substance: PROMETHAZINE HYDROCHLORIDE
     Indication: MORNING SICKNESS
     Dosage: 25 MG Q 4 HOURS PRN
  4. PROMETHAZINE [Concomitant]
     Active Substance: PROMETHAZINE HYDROCHLORIDE
     Indication: MORNING SICKNESS
  5. MAKENA [Suspect]
     Active Substance: HYDROXYPROGESTERONE CAPROATE
     Indication: PREMATURE DELIVERY
     Route: 058
     Dates: start: 20200227, end: 20200409

REACTIONS (3)
  - Breech presentation [Recovered/Resolved]
  - Premature delivery [Recovered/Resolved]
  - Amniotic cavity infection [Recovered/Resolved]

NARRATIVE: CASE EVENT DATE: 20200411
